FAERS Safety Report 8790143 (Version 1)
Quarter: 2012Q4

REPORT INFORMATION
  Report Type: 
  Country: GB (occurrence: GB)
  Receive Date: 20120917
  Receipt Date: 20120917
  Transmission Date: 20130627
  Serious: Yes (Other)
  Sender: FDA-Public Use
  Company Number: GB-B.I. PHARMACEUTICALS,INC./RIDGEFIELD-2012-UK-01186UK

PATIENT
  Age: 78 Year
  Sex: Male
  Weight: 85 kg

DRUGS (10)
  1. SPIRIVA [Suspect]
     Dates: start: 20120619
  2. ASPIRIN [Concomitant]
     Dates: start: 20120515
  3. FERROUS FUMARATE [Concomitant]
     Dates: start: 20120716
  4. GLICLAZIDE [Concomitant]
     Dates: start: 20120515
  5. IPRATROPIUM BROMIDE [Concomitant]
     Dates: start: 20120504, end: 20120705
  6. LISINOPRIL [Concomitant]
     Dates: start: 20120504
  7. METFORMIN [Concomitant]
     Dates: start: 20120515
  8. OMEPRAZOLE [Concomitant]
     Dates: start: 20120515
  9. ROSUVASTATIN [Concomitant]
     Dates: start: 20120515
  10. SERETIDE [Concomitant]
     Dates: start: 20120504

REACTIONS (2)
  - Dysgeusia [Not Recovered/Not Resolved]
  - Ulcer [Not Recovered/Not Resolved]
